FAERS Safety Report 8238108-5 (Version None)
Quarter: 2012Q1

REPORT INFORMATION
  Report Type: 
  Country: None (occurrence: None)
  Receive Date: 20120327
  Receipt Date: 20120323
  Transmission Date: 20120608
  Serious: Yes (Other)
  Sender: FDA-Public Use
  Company Number: JP-GLAXOSMITHKLINE-B0791390A

PATIENT
  Sex: Male

DRUGS (5)
  1. DUTASTERIDE [Suspect]
     Indication: BENIGN PROSTATIC HYPERPLASIA
     Dosage: .5MG PER DAY
     Route: 048
     Dates: start: 20110419, end: 20120316
  2. AMLODIPINE [Concomitant]
     Route: 048
  3. DIOVAN [Concomitant]
     Route: 048
  4. CARVEDILOL [Concomitant]
     Route: 048
  5. URIEF [Concomitant]
     Route: 048

REACTIONS (1)
  - HEPATIC FUNCTION ABNORMAL [None]
